FAERS Safety Report 18269766 (Version 1)
Quarter: 2020Q3

REPORT INFORMATION
  Report Type: Spontaneous
  Country: IN (occurrence: IN)
  Receive Date: 20200915
  Receipt Date: 20200915
  Transmission Date: 20201103
  Serious: Yes (Hospitalization)
  Sender: FDA-Public Use
  Company Number: IN-MYLANLABS-2020M1078427

PATIENT
  Age: 32 Year
  Sex: Female

DRUGS (3)
  1. HYDROXYCHLOROQUINE [Suspect]
     Active Substance: HYDROXYCHLOROQUINE
     Indication: COVID-19 PROPHYLAXIS
     Dosage: 800 MG, FIRST DOSE 800 MG ON FIRST DAY, SECOND DOSE 400 MG AFTER 1 WEEK, THE SAME DOSE IN 3 WEEK.
     Route: 065
  2. HYDROXYCHLOROQUINE [Suspect]
     Active Substance: HYDROXYCHLOROQUINE
     Dosage: 400 MG, FIRST DOSE 800 MG ON FIRST DAY, SECOND DOSE 400 MG AFTER 1 WEEK,  THE SAME DOSE IN 3 WEEK.
     Route: 065
  3. PYRIDOSTIGMINE [Concomitant]
     Active Substance: PYRIDOSTIGMINE
     Indication: MYASTHENIA GRAVIS
     Dosage: UNK UNK, PRN, STABLE ON PYRIDOSTIGMINE (SOS) WITHOUT ANY DISEASE?MODIFYING ...
     Route: 065

REACTIONS (4)
  - Tachycardia [Recovering/Resolving]
  - Off label use [Recovering/Resolving]
  - Myasthenia gravis [Recovering/Resolving]
  - Tachypnoea [Recovering/Resolving]
